FAERS Safety Report 6757459-4 (Version None)
Quarter: 2010Q2

REPORT INFORMATION
  Report Type: 
  Country: None (occurrence: None)
  Receive Date: 20100607
  Receipt Date: 20100526
  Transmission Date: 20101027
  Serious: No
  Sender: FDA-Public Use
  Company Number: US-BIOGENIDEC-2010BI017274

PATIENT
  Age: 59 Year
  Sex: Female

DRUGS (4)
  1. AVONEX [Suspect]
     Indication: MULTIPLE SCLEROSIS
     Route: 030
     Dates: start: 20091030, end: 20091030
  2. AVONEX [Suspect]
     Route: 030
     Dates: start: 20091106, end: 20091106
  3. AVONEX [Suspect]
     Route: 030
     Dates: start: 20091113, end: 20091113
  4. AVONEX [Suspect]
     Route: 030
     Dates: start: 20091120

REACTIONS (4)
  - ASTHENIA [None]
  - CHILLS [None]
  - DYSSTASIA [None]
  - GAIT DISTURBANCE [None]
